FAERS Safety Report 12693566 (Version 1)
Quarter: 2016Q3

REPORT INFORMATION
  Report Type: Spontaneous
  Country: US (occurrence: US)
  Receive Date: 20160829
  Receipt Date: 20160829
  Transmission Date: 20161109
  Serious: No
  Sender: FDA-Public Use
  Company Number: US-BAYER-2016-160200

PATIENT
  Age: 71 Year
  Sex: Female
  Weight: 68.27 kg

DRUGS (15)
  1. MIRALAX [Suspect]
     Active Substance: POLYETHYLENE GLYCOL 3350
     Indication: BOWEL MOVEMENT IRREGULARITY
  2. CITRACAL PETITES [Concomitant]
     Active Substance: CALCIUM CITRATE
  3. MIRALAX [Suspect]
     Active Substance: POLYETHYLENE GLYCOL 3350
     Indication: CONSTIPATION
  4. LASIX [Concomitant]
     Active Substance: FUROSEMIDE
  5. PROTONIX [Concomitant]
     Active Substance: PANTOPRAZOLE SODIUM
  6. ZYRTEC [Concomitant]
     Active Substance: CETIRIZINE HYDROCHLORIDE
  7. VITAMIN D [Concomitant]
     Active Substance: CHOLECALCIFEROL
     Indication: VITAMIN SUPPLEMENTATION
  8. MIRALAX [Suspect]
     Active Substance: POLYETHYLENE GLYCOL 3350
     Indication: COLONOSCOPY
     Dosage: 1 DF, HS IF SHE DID NOT HAVE A BOWEL MOVEMENT THAT DAY
     Route: 048
     Dates: start: 200803
  9. GABAPENTIN. [Concomitant]
     Active Substance: GABAPENTIN
  10. LUTEIN [Concomitant]
     Active Substance: LUTEIN
  11. TURMERIC [Concomitant]
     Active Substance: TURMERIC
  12. CRESTOR [Concomitant]
     Active Substance: ROSUVASTATIN CALCIUM
  13. FLOVENT [Concomitant]
     Active Substance: FLUTICASONE PROPIONATE
  14. PLAVIX [Concomitant]
     Active Substance: CLOPIDOGREL BISULFATE
  15. KRILL OIL [Concomitant]
     Active Substance: DIETARY SUPPLEMENT

REACTIONS (3)
  - Product use issue [None]
  - Off label use [None]
  - Expired product administered [None]

NARRATIVE: CASE EVENT DATE: 200803
